FAERS Safety Report 14903619 (Version 1)
Quarter: 2018Q2

REPORT INFORMATION
  Report Type: Spontaneous
  Country: US (occurrence: US)
  Receive Date: 20180516
  Receipt Date: 20180516
  Transmission Date: 20180711
  Serious: Yes (Other)
  Sender: FDA-Public Use
  Company Number: US-VIFOR (INTERNATIONAL) INC.-VIT-2016-04347

PATIENT
  Age: 67 Year
  Sex: Female

DRUGS (3)
  1. VELTASSA [Suspect]
     Active Substance: PATIROMER
     Indication: BLOOD POTASSIUM INCREASED
     Route: 048
     Dates: start: 20160624
  2. WARFARIN [Suspect]
     Active Substance: WARFARIN
     Indication: PRODUCT USED FOR UNKNOWN INDICATION
     Dates: end: 201607
  3. WARFARIN [Suspect]
     Active Substance: WARFARIN
     Dates: start: 201607

REACTIONS (4)
  - Somnolence [Unknown]
  - Malaise [Unknown]
  - Anticoagulation drug level below therapeutic [Not Recovered/Not Resolved]
  - Inhibitory drug interaction [Not Recovered/Not Resolved]

NARRATIVE: CASE EVENT DATE: 20160630
